FAERS Safety Report 5862874-7 (Version None)
Quarter: 2008Q3

REPORT INFORMATION
  Report Type: 
  Country: None (occurrence: None)
  Receive Date: 20080828
  Receipt Date: 20080822
  Transmission Date: 20090109
  Serious: Yes (Other)
  Sender: FDA-Public Use
  Company Number: A0731238A

PATIENT
  Age: 65 Year
  Sex: Female
  Weight: 127.3 kg

DRUGS (4)
  1. AVANDIA [Suspect]
     Dosage: 4MG TWICE PER DAY
     Route: 048
     Dates: start: 20030101, end: 20070101
  2. ACTOS [Concomitant]
     Dates: start: 20060101, end: 20060101
  3. LANTUS [Concomitant]
     Dates: start: 20050101
  4. BYETTA [Concomitant]
     Dates: start: 20050101, end: 20050101

REACTIONS (3)
  - CARDIAC FAILURE CONGESTIVE [None]
  - INJURY [None]
  - NAUSEA [None]
